FAERS Safety Report 9963596 (Version 1)
Quarter: 2014Q1

REPORT INFORMATION
  Report Type: Report from Study
  Country: US (occurrence: US)
  Receive Date: 20140305
  Receipt Date: 20140305
  Transmission Date: 20141002
  Serious: Yes (Hospitalization)
  Sender: FDA-Public Use
  Company Number: US-ABBVIE-13P-163-1117084-00

PATIENT
  Age: 59 Year
  Sex: Female
  Weight: 59.93 kg

DRUGS (3)
  1. HUMIRA [Suspect]
     Indication: RHEUMATOID ARTHRITIS
     Dates: start: 2008, end: 2011
  2. HUMIRA [Suspect]
     Dates: start: 2011, end: 201212
  3. FLURBIPROFEN [Concomitant]
     Indication: RHEUMATOID ARTHRITIS

REACTIONS (3)
  - Hip fracture [Unknown]
  - Arthralgia [Unknown]
  - Platelet count decreased [Recovered/Resolved]
